FAERS Safety Report 8044795-7 (Version None)
Quarter: 2012Q1

REPORT INFORMATION
  Report Type: 
  Country: None (occurrence: None)
  Receive Date: 20120113
  Receipt Date: 20120106
  Transmission Date: 20120608
  Serious: Yes (Hospitalization, Other)
  Sender: FDA-Public Use
  Company Number: FR-PFIZER INC-2012005673

PATIENT
  Age: 21 Year
  Sex: Male

DRUGS (2)
  1. METRONIDAZOLE [Suspect]
     Indication: SINUSITIS
     Dosage: 1.5 G, UNK
  2. CEFTRIAXONE [Concomitant]
     Indication: SINUSITIS
     Dosage: 4 G, UNK
     Route: 042

REACTIONS (4)
  - AXONAL NEUROPATHY [None]
  - CEREBELLAR SYNDROME [None]
  - TOXIC ENCEPHALOPATHY [None]
  - NEUROTOXICITY [None]
